FAERS Safety Report 12764168 (Version 1)
Quarter: 2016Q3

REPORT INFORMATION
  Report Type: Spontaneous
  Country: GB (occurrence: GB)
  Receive Date: 20160920
  Receipt Date: 20160920
  Transmission Date: 20161109
  Serious: Yes (Other)
  Sender: FDA-Public Use
  Company Number: GB-TEVA-692659ACC

PATIENT
  Age: 78 Year
  Sex: Male

DRUGS (5)
  1. ALLOPURINOL. [Concomitant]
     Active Substance: ALLOPURINOL
     Indication: GOUT
  2. LOPERAMIDE [Suspect]
     Active Substance: LOPERAMIDE
     Indication: CONSTIPATION
     Dosage: 8 MILLIGRAM DAILY; 2 MG, 2 TABLETS,4 TIMES PER DAY
     Dates: end: 20160822
  3. BISOPROLOL [Concomitant]
     Active Substance: BISOPROLOL
  4. RAMIPRIL. [Concomitant]
     Active Substance: RAMIPRIL
  5. SIMVASTATIN. [Concomitant]
     Active Substance: SIMVASTATIN

REACTIONS (4)
  - Erythema [Recovering/Resolving]
  - Skin irritation [Recovered/Resolved]
  - Lip swelling [Recovering/Resolving]
  - Pruritus [Recovered/Resolved]

NARRATIVE: CASE EVENT DATE: 20160822
